FAERS Safety Report 4357935-8 (Version None)
Quarter: 2004Q2

REPORT INFORMATION
  Report Type: 
  Country: None (occurrence: None)
  Receive Date: 20040514
  Receipt Date: 20040503
  Transmission Date: 20050107
  Serious: Yes (Death)
  Sender: FDA-Public Use
  Company Number: US-BRISTOL-MYERS SQUIBB COMPANY-12577888

PATIENT
  Age: 46 Year
  Sex: Male
  Weight: 91 kg

DRUGS (3)
  1. COUMADIN [Suspect]
     Indication: HEART VALVE REPLACEMENT
     Dosage: ON VARYING DOSES
     Route: 048
  2. ALCOHOL [Concomitant]
  3. LOTENSIN [Concomitant]

REACTIONS (2)
  - DEATH [None]
  - INFLUENZA LIKE ILLNESS [None]
